FAERS Safety Report 7208845-X (Version None)
Quarter: 2011Q1

REPORT INFORMATION
  Report Type: 
  Country: None (occurrence: None)
  Receive Date: 20110104
  Receipt Date: 20070423
  Transmission Date: 20110831
  Serious: Yes (Other)
  Sender: FDA-Public Use
  Company Number: PHHY2007AR03774

PATIENT
  Sex: Female

DRUGS (4)
  1. LYRICA [Concomitant]
     Dosage: UNK
  2. TEGRETOL [Suspect]
     Indication: RESTLESS LEGS SYNDROME
     Dosage: 200 MG, QD
     Route: 048
     Dates: start: 19970101
  3. TRILEPTAL [Suspect]
     Indication: EPILEPSY
     Dosage: 300 MG (3 TABLETS DAILY)
     Route: 048
     Dates: start: 20060101
  4. SIFROL [Concomitant]
     Dosage: UNK

REACTIONS (4)
  - NEUROLOGICAL DECOMPENSATION [None]
  - DIZZINESS [None]
  - BLOOD PRESSURE INCREASED [None]
  - MALAISE [None]
